FAERS Safety Report 7124335-7 (Version None)
Quarter: 2010Q4

REPORT INFORMATION
  Report Type: 
  Country: None (occurrence: None)
  Receive Date: 20101126
  Receipt Date: 20101118
  Transmission Date: 20110411
  Serious: Yes (Other)
  Sender: FDA-Public Use
  Company Number: PHHY2010JP76735

PATIENT
  Age: 77 Year
  Sex: Female

DRUGS (4)
  1. CYCLOSPORINE [Suspect]
     Indication: APLASTIC ANAEMIA
     Dosage: UNK
     Route: 048
     Dates: start: 20091001, end: 20091101
  2. CYCLOSPORINE [Suspect]
     Indication: IMMUNOSUPPRESSION
  3. ANTI-THYMOCYTE GLOBULIN NOS [Suspect]
     Indication: IMMUNOSUPPRESSION
     Dosage: UNK
     Dates: start: 20091001
  4. DANAZOL [Concomitant]
     Dosage: UNK
     Dates: start: 20100101

REACTIONS (5)
  - ANTINEUTROPHIL CYTOPLASMIC ANTIBODY POSITIVE [None]
  - BLOOD CREATININE DECREASED [None]
  - GLOMERULONEPHRITIS RAPIDLY PROGRESSIVE [None]
  - HAEMODIALYSIS [None]
  - RENAL IMPAIRMENT [None]
